FAERS Safety Report 7933157-6 (Version None)
Quarter: 2011Q4

REPORT INFORMATION
  Report Type: 
  Country: None (occurrence: None)
  Receive Date: 20111122
  Receipt Date: 20111118
  Transmission Date: 20120403
  Serious: Yes (Death, Other)
  Sender: FDA-Public Use
  Company Number: PHHY2011CA100066

PATIENT
  Sex: Male

DRUGS (12)
  1. DEXAMETHASONE [Concomitant]
  2. LIPITOR [Concomitant]
  3. VITAMIN D [Concomitant]
  4. BISOPROLOL FUMARATE [Concomitant]
  5. IRON [Concomitant]
  6. ASPIRIN [Concomitant]
  7. DOCETAXEL [Concomitant]
  8. PERINDOPRIL ERBUMINE [Concomitant]
  9. ZOMETA [Suspect]
     Indication: METASTASES TO BONE
     Dosage: 4 MG, EVERY 4 WEEKS
     Route: 042
     Dates: start: 20110216, end: 20110901
  10. VITAMIN B-12 [Concomitant]
  11. DILAUDID [Concomitant]
  12. VENTOLIN [Concomitant]

REACTIONS (4)
  - SEPSIS [None]
  - MULTI-ORGAN FAILURE [None]
  - NEOPLASM MALIGNANT [None]
  - NEOPLASM PROGRESSION [None]
